FAERS Safety Report 24612405 (Version 1)
Quarter: 2024Q4

REPORT INFORMATION
  Report Type: Other
  Country: US (occurrence: US)
  Receive Date: 20241113
  Receipt Date: 20241113
  Transmission Date: 20250115
  Serious: Yes (Disabling, Other)
  Sender: DEXCEL
  Company Number: US-DEXPHARM-2024-4374

PATIENT
  Age: 49 Year
  Sex: Male

DRUGS (6)
  1. DEXAMETHASONE [Suspect]
     Active Substance: DEXAMETHASONE
     Dosage: 0.5 ML OF DEXAMETHASONE 10 MG/ML, FOR A TOTAL OF 5 MG OF DEXAMETHASONE, MIXED WITH 2.5 ML NORMAL ...
  2. LOPERAMIDE [Concomitant]
     Active Substance: LOPERAMIDE
  3. MELOXICAM [Concomitant]
     Active Substance: MELOXICAM
  4. OMEPRAZOLE [Concomitant]
     Active Substance: OMEPRAZOLE
  5. SILDENAFIL [Concomitant]
     Active Substance: SILDENAFIL
  6. loperamide, meloxicam, omeprazole, and sildenafil [Concomitant]

REACTIONS (3)
  - Anorgasmia [Recovered/Resolved]
  - Paraesthesia [Recovered/Resolved]
  - Condition aggravated [Recovered/Resolved]
